FAERS Safety Report 11544488 (Version 1)
Quarter: 2015Q3

REPORT INFORMATION
  Report Type: Spontaneous
  Country: JP (occurrence: JP)
  Receive Date: 20150924
  Receipt Date: 20150924
  Transmission Date: 20151125
  Serious: Yes (Hospitalization)
  Sender: FDA-Public Use
  Company Number: JP-ASTELLAS-2009JP006432

PATIENT
  Age: 17 Year
  Sex: Male
  Weight: 23 kg

DRUGS (9)
  1. MEDROL [Suspect]
     Active Substance: METHYLPREDNISOLONE
     Dosage: UNK UNK, UNKNOWN FREQ.
     Route: 048
     Dates: end: 20080812
  2. MEDROL [Suspect]
     Active Substance: METHYLPREDNISOLONE
     Route: 048
     Dates: start: 20080813, end: 20080819
  3. MODACIN [Concomitant]
     Active Substance: CEFTAZIDIME
     Indication: PYELONEPHRITIS ACUTE
     Dosage: 0.7 G, THRICE DAILY
     Route: 042
     Dates: start: 20080725, end: 20080808
  4. CEFDINIR. [Concomitant]
     Active Substance: CEFDINIR
     Indication: PROPHYLAXIS URINARY TRACT INFECTION
     Dosage: UNK UNK, UNKNOWN FREQ.
     Route: 048
  5. PROGRAF [Suspect]
     Active Substance: TACROLIMUS\TACROLIMUS ANHYDROUS
     Indication: IMMUNOSUPPRESSANT DRUG THERAPY
     Route: 048
     Dates: start: 20060829, end: 20080826
  6. CELLCEPT [Concomitant]
     Active Substance: MYCOPHENOLATE MOFETIL\MYCOPHENOLATE MOFETIL HYDROCHLORIDE
     Indication: IMMUNOSUPPRESSANT DRUG THERAPY
     Route: 048
     Dates: start: 20060829
  7. MEDROL [Suspect]
     Active Substance: METHYLPREDNISOLONE
     Indication: IMMUNOSUPPRESSANT DRUG THERAPY
     Route: 048
     Dates: start: 20060829
  8. GASTER [Concomitant]
     Active Substance: FAMOTIDINE
     Indication: PROPHYLAXIS
     Route: 048
     Dates: start: 20060829
  9. MEDROL [Suspect]
     Active Substance: METHYLPREDNISOLONE
     Route: 048
     Dates: start: 20080820

REACTIONS (3)
  - Encapsulating peritoneal sclerosis [Recovering/Resolving]
  - Urinary tract infection [Recovered/Resolved]
  - Diabetes mellitus [Recovering/Resolving]

NARRATIVE: CASE EVENT DATE: 20080724
